FAERS Safety Report 8837891 (Version 2)
Quarter: 2012Q4

REPORT INFORMATION
  Report Type: 
  Country: US (occurrence: US)
  Receive Date: 20121012
  Receipt Date: 20121107
  Transmission Date: 20130627
  Serious: Yes (Other)
  Sender: FDA-Public Use
  Company Number: US-PFIZER INC-2012253786

PATIENT
  Age: 55 Year
  Sex: Female
  Weight: 46.26 kg

DRUGS (3)
  1. CHANTIX [Suspect]
     Indication: SMOKING CESSATION THERAPY
     Dosage: 0.5 mg, 1x/day
     Route: 048
     Dates: start: 20121008, end: 20121010
  2. ENALAPRIL [Concomitant]
     Indication: BLOOD PRESSURE HIGH
     Dosage: UNK
  3. KEFLEX [Concomitant]
     Dosage: 500 mg, 2x/day

REACTIONS (5)
  - Chest pain [Recovering/Resolving]
  - Syncope [Recovering/Resolving]
  - Presyncope [Recovering/Resolving]
  - Dizziness [Recovering/Resolving]
  - Nausea [Recovering/Resolving]
